FAERS Safety Report 17758766 (Version 2)
Quarter: 2020Q2

REPORT INFORMATION
  Report Type: Spontaneous
  Country: SK (occurrence: SK)
  Receive Date: 20200508
  Receipt Date: 20200513
  Transmission Date: 20200714
  Serious: Yes (Hospitalization, Other)
  Sender: FDA-Public Use
  Company Number: SK-CELLTRION INC.-2020SK022143

PATIENT

DRUGS (2)
  1. RITUXIMAB (UNKNOWN) [Suspect]
     Active Substance: RITUXIMAB
     Indication: NEPHROTIC SYNDROME
     Dosage: UNK
  2. CYCLOSPORIN A [Concomitant]
     Active Substance: CYCLOSPORINE
     Indication: NEPHROTIC SYNDROME
     Dosage: UNK

REACTIONS (12)
  - Product use issue [Unknown]
  - Product use in unapproved indication [Unknown]
  - Depressed level of consciousness [Recovered/Resolved]
  - Dysarthria [Unknown]
  - Tachycardia [Unknown]
  - Generalised oedema [Unknown]
  - Nephrotic syndrome [Unknown]
  - Ascites [Unknown]
  - Hypotension [Recovered/Resolved]
  - Confusional state [Recovered/Resolved]
  - Swelling [Unknown]
  - Anuria [Recovered/Resolved]
